FAERS Safety Report 15925882 (Version 5)
Quarter: 2019Q2

REPORT INFORMATION
  Report Type: Report from Study
  Country: IT (occurrence: IT)
  Receive Date: 20190206
  Receipt Date: 20190516
  Transmission Date: 20190711
  Serious: Yes (Hospitalization)
  Sender: FDA-Public Use
  Company Number: IT-MYLANLABS-2019M1011067

PATIENT
  Age: 65 Year
  Sex: Female
  Weight: 70 kg

DRUGS (12)
  1. ZOPRAZIDE [Suspect]
     Active Substance: HYDROCHLOROTHIAZIDE\ZOFENOPRIL CALCIUM
     Indication: HYPERTENSION
     Dosage: 0.5 DOSAGE FORM, QD
     Route: 048
     Dates: start: 20180703, end: 20180723
  2. DELTACORTENE [Concomitant]
     Active Substance: PREDNISONE
     Dosage: 50 MILLIGRAM
     Route: 048
  3. BISOPROLOL FUMARATE. [Concomitant]
     Active Substance: BISOPROLOL FUMARATE
     Dosage: 1.25 MILLIGRAM
     Route: 048
     Dates: start: 20180203
  4. INSULIN LISPRO [Concomitant]
     Active Substance: INSULIN LISPRO
     Indication: INSULIN-REQUIRING TYPE 2 DIABETES MELLITUS
     Dosage: 10 INTERNATIONAL UNIT
     Route: 058
  5. CEDRAVIS [Concomitant]
     Dosage: 35 MILLIGRAM
     Route: 048
  6. MYFENAX                            /00372303/ [Concomitant]
     Active Substance: DICLOFENAC DIETHYLAMINE
     Indication: MYASTHENIA GRAVIS
     Dosage: 2 GRAM
     Route: 048
     Dates: start: 20161018
  7. SPIDIFEN [Suspect]
     Active Substance: IBUPROFEN ARGININE
     Indication: PAIN IN EXTREMITY
     Dosage: 1.2 GRAM, QD
     Route: 048
     Dates: start: 20180710, end: 20180723
  8. LANSOPRAZOLE. [Concomitant]
     Active Substance: LANSOPRAZOLE
     Dosage: 30 MILLIGRAM
     Route: 048
  9. METFORMIN [Suspect]
     Active Substance: METFORMIN HYDROCHLORIDE
     Indication: INSULIN-REQUIRING TYPE 2 DIABETES MELLITUS
     Dosage: 2.55 GRAM, QD
     Route: 048
     Dates: start: 20180706, end: 20180723
  10. LASIX [Suspect]
     Active Substance: FUROSEMIDE
     Indication: HYPERTENSION
     Dosage: 1 DOSAGE FORM, BID
     Route: 048
  11. VENITAL [Concomitant]
     Active Substance: HUMAN IMMUNOGLOBULIN G
     Indication: MYASTHENIA GRAVIS
     Dosage: 25 GRAM
     Route: 042
  12. DIBASE [Concomitant]
     Active Substance: CHOLECALCIFEROL
     Dosage: UNK

REACTIONS (5)
  - Acute kidney injury [Unknown]
  - Renal failure [Unknown]
  - Renal tubular disorder [Unknown]
  - Electrolyte imbalance [Unknown]
  - Tubulointerstitial nephritis [Unknown]

NARRATIVE: CASE EVENT DATE: 20180723
